FAERS Safety Report 11916326 (Version 1)
Quarter: 2016Q1

REPORT INFORMATION
  Report Type: Spontaneous
  Country: FR (occurrence: FR)
  Receive Date: 20160114
  Receipt Date: 20160114
  Transmission Date: 20160526
  Serious: Yes (Hospitalization, Other)
  Sender: FDA-Public Use
  Company Number: FR-PFIZER INC-2016006145

PATIENT
  Age: 89 Year
  Sex: Male

DRUGS (5)
  1. LYRICA [Suspect]
     Active Substance: PREGABALIN
     Dosage: 25 MG, 4X/DAY
     Route: 048
     Dates: start: 201507
  2. TAXOTERE [Suspect]
     Active Substance: DOCETAXEL
     Dosage: UNK, CYCLIC
     Route: 042
     Dates: start: 20150701, end: 20150724
  3. TEMESTA /00273201/ [Concomitant]
     Active Substance: LORAZEPAM
     Dosage: 1 MG, DAILY
  4. SEROPRAM [Concomitant]
     Active Substance: CITALOPRAM HYDROBROMIDE
     Dosage: 5 MG, DAILY
  5. VALSARTAN. [Concomitant]
     Active Substance: VALSARTAN
     Dosage: 80 MG, DAILY

REACTIONS (6)
  - Cardiac failure [Recovered/Resolved]
  - Bundle branch block right [Unknown]
  - Hypoproteinaemia [Unknown]
  - Normochromic normocytic anaemia [Unknown]
  - Arthralgia [Unknown]
  - Sciatica [Unknown]

NARRATIVE: CASE EVENT DATE: 2015
